FAERS Safety Report 9695596 (Version 1)
Quarter: 2013Q4

REPORT INFORMATION
  Report Type: Spontaneous
  Country: US (occurrence: US)
  Receive Date: 20131119
  Receipt Date: 20131119
  Transmission Date: 20140711
  Serious: No
  Sender: FDA-Public Use
  Company Number: US-PFIZER INC-2013325513

PATIENT
  Age: 72 Year
  Sex: Female
  Weight: 59.86 kg

DRUGS (1)
  1. ADVIL [Suspect]
     Indication: ARTHRITIS
     Dosage: UNK
     Dates: start: 20131113

REACTIONS (1)
  - Rash generalised [Not Recovered/Not Resolved]
